FAERS Safety Report 15320088 (Version 1)
Quarter: 2018Q3

REPORT INFORMATION
  Report Type: Spontaneous
  Country: US (occurrence: US)
  Receive Date: 20180827
  Receipt Date: 20180827
  Transmission Date: 20181010
  Serious: No
  Sender: FDA-Public Use
  Company Number: US-PFIZER INC-2018340406

PATIENT
  Age: 6 Year
  Sex: Female

DRUGS (1)
  1. GENOTROPIN [Suspect]
     Active Substance: SOMATROPIN
     Dosage: 0.2 MG, UNK (6 DAYS A WEEK)
     Dates: start: 20171010

REACTIONS (7)
  - Neutrophil count increased [Unknown]
  - Eosinophil count decreased [Unknown]
  - Lymphocyte morphology abnormal [Unknown]
  - Mean platelet volume increased [Unknown]
  - Lymphocyte count decreased [Unknown]
  - Eosinophil percentage decreased [Unknown]
  - Monocyte count increased [Unknown]

NARRATIVE: CASE EVENT DATE: 20180730
